FAERS Safety Report 7623467-4 (Version None)
Quarter: 2011Q3

REPORT INFORMATION
  Report Type: 
  Country: None (occurrence: None)
  Receive Date: 20110720
  Receipt Date: 20110713
  Transmission Date: 20111222
  Serious: Yes (Death)
  Sender: FDA-Public Use
  Company Number: PHHY2011SE63054

PATIENT
  Age: 30 Year
  Sex: Female

DRUGS (7)
  1. OLANZAPINE [Suspect]
  2. AMPHETAMINE SULFATE [Suspect]
  3. HERBAL BLEND KRYPTON [Suspect]
  4. PHENAZONE [Suspect]
  5. FLUOXETINE [Suspect]
  6. DIAZEPAM [Suspect]
  7. PREGABALIN [Suspect]

REACTIONS (1)
  - TOXICITY TO VARIOUS AGENTS [None]
